FAERS Safety Report 7010085-4 (Version None)
Quarter: 2010Q3

REPORT INFORMATION
  Report Type: 
  Country: None (occurrence: None)
  Receive Date: 20100923
  Receipt Date: 20100917
  Transmission Date: 20110219
  Serious: Yes (Other)
  Sender: FDA-Public Use
  Company Number: BR-TEVA-233678USA

PATIENT
  Age: 34 Year
  Sex: Male

DRUGS (4)
  1. PIMOZIDE TABLETS [Suspect]
     Indication: ANXIETY
     Route: 048
     Dates: start: 20090901
  2. PIMOZIDE TABLETS [Suspect]
     Indication: PHOBIA
  3. VALPROATE SEMISODIUM [Suspect]
  4. SULPIRIDE [Suspect]
     Indication: PRODUCT USED FOR UNKNOWN INDICATION

REACTIONS (9)
  - HYPERHIDROSIS [None]
  - LOCALISED OEDEMA [None]
  - NIGHTMARE [None]
  - PRURITUS [None]
  - PYREXIA [None]
  - SEDATION [None]
  - SOMNOLENCE [None]
  - TREMOR [None]
  - WEIGHT INCREASED [None]
